FAERS Safety Report 24641160 (Version 1)
Quarter: 2024Q4

REPORT INFORMATION
  Report Type: Spontaneous
  Country: US (occurrence: US)
  Receive Date: 20241120
  Receipt Date: 20241120
  Transmission Date: 20250114
  Serious: Yes (Hospitalization, Other)
  Sender: CHEPLAPHARM
  Company Number: US-ASTRAZENECA-202410USA020178US

PATIENT

DRUGS (1)
  1. BUDESONIDE [Suspect]
     Active Substance: BUDESONIDE
     Route: 055

REACTIONS (7)
  - Colitis ulcerative [Unknown]
  - HLA-B*27 positive [Unknown]
  - Arthritis [Unknown]
  - Back pain [Unknown]
  - Gait disturbance [Unknown]
  - Fall [Unknown]
  - Joint injury [Unknown]
